FAERS Safety Report 13935089 (Version 2)
Quarter: 2017Q3

REPORT INFORMATION
  Report Type: Spontaneous
  Country: CL (occurrence: CL)
  Receive Date: 20170905
  Receipt Date: 20170914
  Transmission Date: 20171127
  Serious: Yes (Other)
  Sender: FDA-Public Use
  Company Number: CL-SUN PHARMACEUTICAL INDUSTRIES LTD-2017R1-148968

PATIENT
  Age: 32 Year
  Sex: Female

DRUGS (1)
  1. MORPHINE [Suspect]
     Active Substance: MORPHINE
     Indication: ABDOMINAL PAIN LOWER
     Route: 042

REACTIONS (5)
  - Transaminases increased [Unknown]
  - Stenosis [Unknown]
  - Bile duct pressure increased [Unknown]
  - Hepatic necrosis [Unknown]
  - Biliary colic [Unknown]
